FAERS Safety Report 6662493-9 (Version None)
Quarter: 2010Q1

REPORT INFORMATION
  Report Type: 
  Country: None (occurrence: None)
  Receive Date: 20100331
  Receipt Date: 20100317
  Transmission Date: 20100710
  Serious: Yes (Hospitalization)
  Sender: FDA-Public Use
  Company Number: SE-MERCK-0204SWE00003

PATIENT
  Age: 64 Year
  Sex: Male

DRUGS (3)
  1. ZOCOR [Suspect]
     Indication: HYPERCHOLESTEROLAEMIA
     Route: 048
     Dates: start: 20001101, end: 20011202
  2. PERSANTINE [Concomitant]
     Route: 065
  3. TROMBYL [Concomitant]
     Route: 065

REACTIONS (1)
  - MYOPATHY [None]
